FAERS Safety Report 4650047-5 (Version None)
Quarter: 2005Q2

REPORT INFORMATION
  Report Type: 
  Country: None (occurrence: None)
  Receive Date: 20050428
  Receipt Date: 20050415
  Transmission Date: 20051028
  Serious: Yes (Other)
  Sender: FDA-Public Use
  Company Number: 2005060428

PATIENT
  Age: 36 Year
  Sex: Male

DRUGS (2)
  1. VFEND [Suspect]
     Indication: ASPERGILLOSIS
     Dosage: ORAL
     Route: 048
     Dates: start: 20050101
  2. CASPOFUNGIN ACETATE (CASPOFUNGIN ACETATE) [Concomitant]

REACTIONS (3)
  - HYPERTHERMIA [None]
  - LUNG DISORDER [None]
  - MUCORMYCOSIS [None]
